FAERS Safety Report 15534230 (Version 1)
Quarter: 2018Q4

REPORT INFORMATION
  Report Type: Spontaneous
  Country: US (occurrence: US)
  Receive Date: 20181019
  Receipt Date: 20181019
  Transmission Date: 20190205
  Serious: Yes (Disabling)
  Sender: FDA-Public Use
  Company Number: None

PATIENT
  Age: 62 Year
  Sex: Female

DRUGS (1)
  1. ZOLPIDEM ER 12.5 MG TABLETS MFG SUN [Suspect]
     Active Substance: ZOLPIDEM\ZOLPIDEM TARTRATE
     Indication: INSOMNIA
     Dosage: ?          QUANTITY:1 TABLET(S);?
     Route: 048
     Dates: start: 20181004

REACTIONS (4)
  - Product substitution issue [None]
  - Loss of personal independence in daily activities [None]
  - Drug ineffective [None]
  - Atrial fibrillation [None]

NARRATIVE: CASE EVENT DATE: 20181004
